FAERS Safety Report 14915409 (Version 2)
Quarter: 2018Q3

REPORT INFORMATION
  Report Type: Report from Study
  Country: DE (occurrence: DE)
  Receive Date: 20180518
  Receipt Date: 20180718
  Transmission Date: 20181010
  Serious: Yes (Life-Threatening, Hospitalization, Other)
  Sender: FDA-Public Use
  Company Number: DE-TEVA-2018-DE-892993

PATIENT
  Age: 73 Year
  Sex: Male
  Weight: 68 kg

DRUGS (24)
  1. AVASTIN [Suspect]
     Active Substance: BEVACIZUMAB
     Route: 042
     Dates: start: 20150129, end: 20150129
  2. FOLINIC ACID [Concomitant]
     Active Substance: LEUCOVORIN
     Route: 065
  3. CARBOPLATIN. [Suspect]
     Active Substance: CARBOPLATIN
     Route: 042
     Dates: start: 20150129, end: 20150129
  4. TRYASOL [Concomitant]
     Route: 065
  5. SIMVASTATIN. [Concomitant]
     Active Substance: SIMVASTATIN
     Route: 065
  6. ALIMTA [Suspect]
     Active Substance: PEMETREXED DISODIUM
     Route: 042
     Dates: start: 20150129, end: 20150129
  7. ALIMTA [Suspect]
     Active Substance: PEMETREXED DISODIUM
     Route: 042
     Dates: start: 20141118
  8. PANTOPRAZOL [Concomitant]
     Active Substance: PANTOPRAZOLE SODIUM
     Indication: DYSPEPSIA
     Route: 048
  9. RAMIPRIL. [Concomitant]
     Active Substance: RAMIPRIL
     Indication: HYPERTENSION
     Dosage: 10 MILLIGRAM DAILY;
     Route: 048
  10. AVASTIN [Suspect]
     Active Substance: BEVACIZUMAB
     Indication: BRONCHIAL CARCINOMA
     Route: 042
     Dates: start: 20141118
  11. ALIMTA [Suspect]
     Active Substance: PEMETREXED DISODIUM
     Indication: BRONCHIAL CARCINOMA
     Route: 042
     Dates: start: 20150108, end: 20150108
  12. AMLODIPIN [Concomitant]
     Active Substance: AMLODIPINE BESYLATE
     Indication: HYPERTENSION
     Route: 048
  13. AMPHO?MORONAL [Concomitant]
     Active Substance: AMPHOTERICIN B
     Indication: PROPHYLAXIS
     Route: 048
     Dates: start: 20150210
  14. ZOPICLON [Concomitant]
     Active Substance: ZOPICLONE
     Route: 065
  15. CARBOPLATIN. [Suspect]
     Active Substance: CARBOPLATIN
     Route: 042
     Dates: start: 20150108, end: 20150108
  16. DEKRISTOL [Concomitant]
     Active Substance: CHOLECALCIFEROL
     Route: 065
  17. ASPIRIN. [Concomitant]
     Active Substance: ASPIRIN
     Indication: PAIN
     Route: 048
  18. CIPROFLOXACIN. [Concomitant]
     Active Substance: CIPROFLOXACIN
     Indication: PROPHYLAXIS
     Dosage: 1000 MILLIGRAM DAILY;
     Route: 048
     Dates: start: 20150210
  19. BISOPROLOL [Concomitant]
     Active Substance: BISOPROLOL
     Route: 048
  20. CARBOPLATIN. [Suspect]
     Active Substance: CARBOPLATIN
     Indication: BRONCHIAL CARCINOMA
     Route: 042
     Dates: start: 20141118
  21. AVASTIN [Suspect]
     Active Substance: BEVACIZUMAB
     Route: 042
     Dates: start: 20150108, end: 20150108
  22. DOLO POSTERINE [Concomitant]
     Route: 054
  23. NOVAMINSULFON [Concomitant]
     Active Substance: METAMIZOLE
     Route: 065
  24. CHLORHEXIDIN [Concomitant]
     Active Substance: CHLORHEXIDINE
     Indication: PROPHYLAXIS
     Route: 048
     Dates: start: 20150210

REACTIONS (11)
  - Anaemia [Recovering/Resolving]
  - Fatigue [Recovered/Resolved]
  - Sleep disorder [Not Recovered/Not Resolved]
  - Insomnia [Unknown]
  - Asthenia [Recovered/Resolved]
  - Leukopenia [Recovering/Resolving]
  - Poor quality sleep [Not Recovered/Not Resolved]
  - Haemorrhoidal haemorrhage [Recovering/Resolving]
  - Thrombocytopenia [Recovered/Resolved]
  - Poor quality sleep [Recovered/Resolved]
  - Fatigue [Unknown]

NARRATIVE: CASE EVENT DATE: 20141204
